FAERS Safety Report 17930620 (Version 1)
Quarter: 2020Q2

REPORT INFORMATION
  Report Type: Spontaneous
  Country: US (occurrence: US)
  Receive Date: 20200623
  Receipt Date: 20200623
  Transmission Date: 20200714
  Serious: No
  Sender: FDA-Public Use
  Company Number: US-ELI_LILLY_AND_COMPANY-US202005010964

PATIENT
  Sex: Female

DRUGS (1)
  1. REYVOW [Suspect]
     Active Substance: LASMIDITAN
     Indication: MIGRAINE
     Dosage: 100 MG, UNKNOWN
     Route: 048

REACTIONS (5)
  - Blood pressure increased [Recovering/Resolving]
  - Depressed mood [Recovered/Resolved]
  - Crying [Recovered/Resolved]
  - Paraesthesia [Recovered/Resolved]
  - Emotional disorder [Recovered/Resolved]
